FAERS Safety Report 10891585 (Version 2)
Quarter: 2015Q2

REPORT INFORMATION
  Report Type: Spontaneous
  Country: GB (occurrence: GB)
  Receive Date: 20150306
  Receipt Date: 20150409
  Transmission Date: 20150821
  Serious: Yes (Other)
  Sender: FDA-Public Use
  Company Number: GB-GLAXOSMITHKLINE INC.-GB2015029129

PATIENT
  Sex: Male

DRUGS (3)
  1. ROPINIROLE. [Suspect]
     Active Substance: ROPINIROLE
     Indication: PRODUCT USED FOR UNKNOWN INDICATION
     Route: 065
  2. RASAGILINE [Suspect]
     Active Substance: RASAGILINE
     Indication: PRODUCT USED FOR UNKNOWN INDICATION
     Route: 065
  3. SINEMET CR [Suspect]
     Active Substance: CARBIDOPA\LEVODOPA
     Indication: PRODUCT USED FOR UNKNOWN INDICATION
     Dosage: 500 MILLIGRAM DAILY;
     Route: 065

REACTIONS (7)
  - Abnormal behaviour [Unknown]
  - Hallucination [Unknown]
  - Prostate cancer [Unknown]
  - Memory impairment [Unknown]
  - Dysuria [Unknown]
  - Bradyphrenia [Unknown]
  - Cognitive disorder [Unknown]
